FAERS Safety Report 9581232 (Version 2)
Quarter: 2013Q4

REPORT INFORMATION
  Report Type: Spontaneous
  Country: DE (occurrence: DE)
  Receive Date: 20131002
  Receipt Date: 20131002
  Transmission Date: 20140711
  Serious: Yes (Disabling)
  Sender: FDA-Public Use
  Company Number: GXKR2013DE002838

PATIENT
  Sex: Female
  Weight: 66.5 kg

DRUGS (8)
  1. DOXYCYLIN 1A PHARMA [Suspect]
     Dosage: 100 MG, QD
     Route: 048
     Dates: start: 20130624
  2. AMLODIPIN AWD [Concomitant]
     Dosage: 5-10MG/DAY
     Route: 048
  3. CLOPIDOGREL HYDROCHLORIDE [Concomitant]
     Dosage: 75 MG, QD (1-0-0)
     Route: 048
  4. L-THYROXIN HENNING [Concomitant]
     Dosage: 200 UG, QD (1-0-0)
     Route: 048
  5. LISINOPRIL STADA//LISINOPRIL [Concomitant]
     Dosage: 5 MG, BID (1/2-0-1/2)
     Route: 048
  6. MACROGOL [Concomitant]
     Dosage: AS NEEDED: 2-3 SACHETS
     Route: 048
  7. MCP HEXAL [Concomitant]
     Dosage: 4X 20-40 GTT/DAY
     Route: 048
  8. PANTOPRA Q [Concomitant]
     Dosage: 40 MG, QHS (AFTER DINNER)
     Route: 048

REACTIONS (3)
  - Ageusia [Not Recovered/Not Resolved]
  - Anosmia [Not Recovered/Not Resolved]
  - Dysgeusia [Unknown]
